FAERS Safety Report 7418781-1 (Version None)
Quarter: 2011Q2

REPORT INFORMATION
  Report Type: 
  Country: None (occurrence: None)
  Receive Date: 20110407
  Receipt Date: 20110325
  Transmission Date: 20111010
  Serious: Yes (Other)
  Sender: FDA-Public Use
  Company Number: 028142

PATIENT
  Sex: Male

DRUGS (9)
  1. VALPROIC ACID [Concomitant]
  2. PROPRANOLOL [Concomitant]
  3. CLOZAPINE [Concomitant]
  4. KEPPRA [Suspect]
     Indication: MYOCLONUS
     Dosage: 3000 MG
     Dates: start: 20100401
  5. KEPPRA [Suspect]
     Indication: EPILEPSY
     Dosage: 3000 MG
     Dates: start: 20100401
  6. KEPPRA [Suspect]
     Indication: GRAND MAL CONVULSION
     Dosage: 3000 MG
     Dates: start: 20100401
  7. CLOMIPRAMINE [Concomitant]
  8. DISULFIRAM [Concomitant]
  9. DIAZEPAM [Concomitant]

REACTIONS (2)
  - IDIOPATHIC THROMBOCYTOPENIC PURPURA [None]
  - BONE MARROW DISORDER [None]
